FAERS Safety Report 16983467 (Version 1)
Quarter: 2019Q4

REPORT INFORMATION
  Report Type: Spontaneous
  Country: GB (occurrence: GB)
  Receive Date: 20191101
  Receipt Date: 20191101
  Transmission Date: 20200122
  Serious: Yes (Other)
  Sender: FDA-Public Use
  Company Number: GB-MYLANLABS-2019M1103557

PATIENT
  Age: 72 Year
  Sex: Female
  Weight: 82.5 kg

DRUGS (2)
  1. PRASUGREL. [Suspect]
     Active Substance: PRASUGREL
     Indication: PRODUCT USED FOR UNKNOWN INDICATION
     Dosage: 1 DOSAGE FORM, TOTAL
     Route: 048
     Dates: start: 20171016, end: 20171016
  2. VENTOLIN [Concomitant]
     Active Substance: ALBUTEROL SULFATE
     Dosage: UNK, PREVIOUSLY
     Route: 055

REACTIONS (9)
  - Epistaxis [Recovering/Resolving]
  - Headache [Recovering/Resolving]
  - Hyperacusis [Recovering/Resolving]
  - Pyrexia [Recovering/Resolving]
  - Asthenia [Recovering/Resolving]
  - Gingival bleeding [Recovering/Resolving]
  - Abdominal discomfort [Recovering/Resolving]
  - Photophobia [Recovering/Resolving]
  - Nightmare [Recovering/Resolving]

NARRATIVE: CASE EVENT DATE: 20171016
